FAERS Safety Report 9223213 (Version 1)
Quarter: 2013Q2

REPORT INFORMATION
  Report Type: Report from Study
  Country: US (occurrence: US)
  Receive Date: 20130410
  Receipt Date: 20130410
  Transmission Date: 20140414
  Serious: Yes (Hospitalization, Other)
  Sender: FDA-Public Use
  Company Number: US-ABBOTT-13P-163-1071482-00

PATIENT
  Age: 67 Year
  Sex: Female
  Weight: 74.91 kg

DRUGS (3)
  1. HUMIRA [Suspect]
     Indication: CROHN^S DISEASE
     Dates: start: 20130313, end: 20130313
  2. HUMIRA [Suspect]
     Dates: start: 20130328, end: 20130328
  3. PENTASA [Concomitant]
     Indication: PRODUCT USED FOR UNKNOWN INDICATION

REACTIONS (4)
  - Ileal stenosis [Not Recovered/Not Resolved]
  - Ileitis [Unknown]
  - Crohn^s disease [Recovered/Resolved]
  - Crohn^s disease [Not Recovered/Not Resolved]
